FAERS Safety Report 5806955-2 (Version None)
Quarter: 2008Q3

REPORT INFORMATION
  Report Type: 
  Country: None (occurrence: None)
  Receive Date: 20080702
  Receipt Date: 20071126
  Transmission Date: 20090109
  Serious: Yes (Other)
  Sender: FDA-Public Use
  Company Number: PROG002076035163

PATIENT
  Age: 37 Year
  Sex: Female
  Weight: 45.5 kg

DRUGS (1)
  1. PROMETRIUM [Suspect]
     Indication: PRENATAL CARE
     Dosage: 100 MILLIGRAM(S) QD VAGINAL DAILY DOSE:  100 MILLIGRAM(S)
     Route: 067
     Dates: start: 20071026, end: 20070101

REACTIONS (1)
  - ABORTION SPONTANEOUS [None]
